FAERS Safety Report 24415815 (Version 1)
Quarter: 2024Q4

REPORT INFORMATION
  Report Type: Spontaneous
  Country: US (occurrence: None)
  Receive Date: 20241008
  Receipt Date: 20241008
  Transmission Date: 20250115
  Serious: Yes (Other)
  Sender: Public
  Company Number: None

PATIENT
  Age: 67 Year
  Sex: Female

DRUGS (2)
  1. AUGTYRO [Suspect]
     Active Substance: REPOTRECTINIB
     Indication: Lung neoplasm malignant
     Dosage: FREQUENCY : DAILY;?
     Dates: start: 20240808, end: 20240815
  2. AUGTYRO [Suspect]
     Active Substance: REPOTRECTINIB
     Indication: Bronchial carcinoma

REACTIONS (8)
  - Vomiting [None]
  - Nausea [None]
  - Nervous system disorder [None]
  - Muscle twitching [None]
  - Gait inability [None]
  - Fall [None]
  - Peripheral swelling [None]
  - Swelling [None]
